FAERS Safety Report 5794635-1 (Version None)
Quarter: 2008Q2

REPORT INFORMATION
  Report Type: 
  Country: None (occurrence: None)
  Receive Date: 20080627
  Receipt Date: 20080627
  Transmission Date: 20081010
  Serious: Yes (Hospitalization)
  Sender: FDA-Public Use
  Company Number: None

PATIENT
  Sex: Female
  Weight: 49.8957 kg

DRUGS (10)
  1. HERCEPTIN [Suspect]
     Indication: NEOPLASM MALIGNANT
  2. FOLFOX [Suspect]
     Indication: NEOPLASM MALIGNANT
  3. OXALIPLATIN [Suspect]
     Indication: NEOPLASM MALIGNANT
  4. FLUOROURACIL [Suspect]
     Indication: NEOPLASM MALIGNANT
  5. ADVAIR DISKUS 100/50 [Concomitant]
  6. PROTONIX [Concomitant]
  7. PERCOCET [Concomitant]
  8. FERROUS SULFATE TAB [Concomitant]
  9. METOPROLOL SUCCINATE [Concomitant]
  10. COMPAZINE [Concomitant]

REACTIONS (5)
  - DEHYDRATION [None]
  - ELECTROCARDIOGRAM CHANGE [None]
  - HYPOKALAEMIA [None]
  - NAUSEA [None]
  - VOMITING [None]
